FAERS Safety Report 5751095-4 (Version None)
Quarter: 2008Q2

REPORT INFORMATION
  Report Type: 
  Country: None (occurrence: None)
  Receive Date: 20080528
  Receipt Date: 20080526
  Transmission Date: 20081010
  Serious: Yes (Death)
  Sender: FDA-Public Use
  Company Number: ES-SANOFI-SYNTHELABO-D01200802718

PATIENT
  Sex: Male
  Weight: 91 kg

DRUGS (12)
  1. NEUPOGEN [Concomitant]
     Dates: start: 20080303, end: 20080305
  2. NEUPOGEN [Concomitant]
     Dates: start: 20080317, end: 20080319
  3. SOLU MODERIN [Concomitant]
     Dates: start: 20080117, end: 20080401
  4. ZOFRAN [Concomitant]
     Dates: start: 20080117, end: 20080401
  5. PRIMPERAN TAB [Concomitant]
     Dates: start: 20080117, end: 20080401
  6. EMCONCOR [Concomitant]
     Dates: end: 20080401
  7. ADIRO [Concomitant]
     Dates: end: 20080401
  8. DUPHALAC [Concomitant]
     Dates: start: 20080113, end: 20080118
  9. LEUCOVORIN CALCIUM [Suspect]
     Route: 042
     Dates: start: 20080323, end: 20080323
  10. FLUOROURACIL [Suspect]
     Dosage: 400 MG/M?, IV BOLUS D1+D2 FOLLOWED BY 5-FU 2400 MG/M? OVER 46-HOUR CONTINUOUS INFUSION.
     Route: 042
     Dates: start: 20080324, end: 20080324
  11. OXALIPLATIN [Suspect]
     Route: 042
     Dates: start: 20080324, end: 20080324
  12. SR57746 OR PLACEBO [Suspect]
     Indication: NEUROLOGICAL SYMPTOM
     Route: 048
     Dates: start: 20080117, end: 20080330

REACTIONS (1)
  - GASTROINTESTINAL PERFORATION [None]
